FAERS Safety Report 9701284 (Version 1)
Quarter: 2013Q4

REPORT INFORMATION
  Report Type: Spontaneous
  Country: US (occurrence: None)
  Receive Date: 20131120
  Receipt Date: 20131120
  Transmission Date: 20140711
  Serious: Yes (Hospitalization)
  Sender: FDA-Public Use
  Company Number: None

PATIENT
  Age: 72 Year
  Sex: Male
  Weight: 72.2 kg

DRUGS (2)
  1. 5-FLUOROURACIL (5-FU) [Suspect]
  2. OXALIPLATIN [Suspect]

REACTIONS (4)
  - Neck pain [None]
  - Muscle spasms [None]
  - Asthenia [None]
  - Oxygen saturation decreased [None]
